FAERS Safety Report 23347072 (Version 2)
Quarter: 2024Q1

REPORT INFORMATION
  Report Type: Spontaneous
  Country: US (occurrence: None)
  Receive Date: 20231228
  Receipt Date: 20240129
  Transmission Date: 20240410
  Serious: Yes (Hospitalization, Other)
  Sender: FDA-Public Use
  Company Number: 2023A290345

PATIENT
  Sex: Female
  Weight: 45.4 kg

DRUGS (1)
  1. FASLODEX [Suspect]
     Active Substance: FULVESTRANT
     Route: 030

REACTIONS (9)
  - Abdominal pain [Unknown]
  - Thrombocytopenia [Unknown]
  - Faecaloma [Unknown]
  - Skin reaction [Unknown]
  - Hypoaesthesia [Unknown]
  - Feeling abnormal [Unknown]
  - Vomiting [Unknown]
  - Paraesthesia [Unknown]
  - Nausea [Unknown]
